FAERS Safety Report 13737006 (Version 3)
Quarter: 2017Q4

REPORT INFORMATION
  Report Type: Report from Study
  Country: US (occurrence: US)
  Receive Date: 20170710
  Receipt Date: 20171002
  Transmission Date: 20180320
  Serious: Yes (Hospitalization)
  Sender: FDA-Public Use
  Company Number: US-VIFOR (INTERNATIONAL) INC.-VIT-2017-07347

PATIENT
  Sex: Male

DRUGS (8)
  1. HUMALOG [Concomitant]
     Active Substance: INSULIN LISPRO
  2. ATORVASTATIN CALCIUM. [Concomitant]
     Active Substance: ATORVASTATIN CALCIUM
  3. LANTUS SOLOSTAR [Concomitant]
     Active Substance: INSULIN GLARGINE
  4. ASPIR 81 [Concomitant]
  5. LYRICA [Concomitant]
     Active Substance: PREGABALIN
  6. CLOPIDOGREL BISULFATE. [Concomitant]
     Active Substance: CLOPIDOGREL BISULFATE
  7. VELTASSA [Suspect]
     Active Substance: PATIROMER
     Indication: HYPERKALAEMIA
     Route: 048
     Dates: start: 20161213
  8. COREG [Concomitant]
     Active Substance: CARVEDILOL

REACTIONS (2)
  - Hospitalisation [Unknown]
  - Product solubility abnormal [Unknown]
